FAERS Safety Report 4373783-7 (Version None)
Quarter: 2004Q2

REPORT INFORMATION
  Report Type: 
  Country: None (occurrence: None)
  Receive Date: 20040607
  Receipt Date: 20040607
  Transmission Date: 20050107
  Serious: No
  Sender: FDA-Public Use
  Company Number: None

PATIENT
  Sex: Female
  Weight: 43.9989 kg

DRUGS (9)
  1. PAXIL [Suspect]
     Indication: DEPRESSION
     Dosage: 30 MG DAILY ORAL
     Route: 048
     Dates: start: 20040421, end: 20040427
  2. TRAMADOL HCL [Suspect]
     Indication: ARTHRALGIA
     Dosage: 50 MG Q6H PRN ORAL
     Route: 048
     Dates: start: 20040213, end: 20040422
  3. HYDROCHLOROTHIAZIDE [Concomitant]
  4. PRINIVIL [Concomitant]
  5. TETRACYCLINE [Concomitant]
  6. ZYRTEC [Concomitant]
  7. TYLENOL W/ CODEINE NO. 3 [Concomitant]
  8. NEXIUM [Concomitant]
  9. IBPROFEN [Concomitant]

REACTIONS (7)
  - ASTHENIA [None]
  - DELIRIUM [None]
  - DEPRESSION [None]
  - MUSCLE SPASMS [None]
  - MYALGIA [None]
  - PARAESTHESIA [None]
  - TREMOR [None]
